FAERS Safety Report 25994655 (Version 1)
Quarter: 2025Q4

REPORT INFORMATION
  Report Type: Spontaneous
  Country: EU (occurrence: EU)
  Receive Date: 20251104
  Receipt Date: 20251104
  Transmission Date: 20260118
  Serious: Yes (Other)
  Sender: SAMSUNG BIOEPIS
  Company Number: None

PATIENT
  Age: 68 Year
  Sex: Male
  Weight: 84 kg

DRUGS (4)
  1. INFLIXIMAB [Suspect]
     Active Substance: INFLIXIMAB
     Indication: Immune-mediated enterocolitis
     Route: 042
     Dates: start: 20230718, end: 20230908
  2. OPDIVO [Suspect]
     Active Substance: NIVOLUMAB
     Indication: Metastatic malignant melanoma
     Dosage: 10 MG/ML, SOLUTION FOR DILUTION FOR INFUSION;
     Route: 042
     Dates: start: 20221223, end: 20230407
  3. OPDIVO [Suspect]
     Active Substance: NIVOLUMAB
     Route: 042
     Dates: start: 20230504, end: 20230504
  4. YERVOY [Suspect]
     Active Substance: IPILIMUMAB
     Indication: Metastatic malignant melanoma
     Dosage: 5 MG/ML, SOLUTION FOR DILUSION FOR INFUSION
     Route: 042
     Dates: start: 20230504, end: 20230504

REACTIONS (4)
  - Granuloma [Recovered/Resolved]
  - Polyarthritis [Recovered/Resolved with Sequelae]
  - Vitiligo [Not Recovered/Not Resolved]
  - Product use in unapproved indication [Unknown]

NARRATIVE: CASE EVENT DATE: 20231015
